FAERS Safety Report 5818886-2 (Version None)
Quarter: 2008Q3

REPORT INFORMATION
  Report Type: 
  Country: None (occurrence: None)
  Receive Date: 20080723
  Receipt Date: 20080711
  Transmission Date: 20090109
  Serious: Yes (Hospitalization, Other)
  Sender: FDA-Public Use
  Company Number: DE-WYE-H05063708

PATIENT
  Sex: Male
  Weight: 88 kg

DRUGS (4)
  1. RAPAMUNE [Suspect]
     Indication: PROPHYLAXIS AGAINST TRANSPLANT REJECTION
     Dosage: 1 MG, FREQUENCY: 1-0-0
     Route: 048
     Dates: start: 20070124
  2. URSO FALK [Concomitant]
     Indication: CHOLELITHIASIS
     Dosage: UNSPECIFIED DOSE, FREQUENCY: 1-0-2
  3. CANDESARTAN CILEXETIL [Concomitant]
     Indication: HYPERTENSION
     Dosage: 8 MG, FREQUENCY: 1-0-0
  4. CELLCEPT [Concomitant]
     Indication: IMMUNOSUPPRESSANT DRUG THERAPY
     Dosage: 1 G, FRQUENCY: 1-0-1

REACTIONS (1)
  - METASTASES TO BONE [None]
